FAERS Safety Report 7719618-3 (Version None)
Quarter: 2011Q3

REPORT INFORMATION
  Report Type: 
  Country: None (occurrence: None)
  Receive Date: 20110830
  Receipt Date: 20110826
  Transmission Date: 20111222
  Serious: Yes (Death, Hospitalization)
  Sender: FDA-Public Use
  Company Number: US-ABBOTT-10P-163-0645465-00

PATIENT
  Age: 80 Year
  Sex: Male
  Weight: 70 kg

DRUGS (15)
  1. COUMADIN [Concomitant]
     Indication: ATRIAL FIBRILLATION
  2. METOLAZONE [Concomitant]
     Indication: PRODUCT USED FOR UNKNOWN INDICATION
  3. PROTONIX [Concomitant]
     Indication: PRODUCT USED FOR UNKNOWN INDICATION
  4. POTASSIUM GLUCONATE TAB [Concomitant]
     Indication: PRODUCT USED FOR UNKNOWN INDICATION
  5. HYDROCHLOROTHIAZIDE [Concomitant]
     Indication: PRODUCT USED FOR UNKNOWN INDICATION
  6. LISINOPRIL [Concomitant]
     Indication: PRODUCT USED FOR UNKNOWN INDICATION
  7. LEVOTHYROXINE SODIUM [Concomitant]
     Indication: PRODUCT USED FOR UNKNOWN INDICATION
  8. PREDNISONE [Concomitant]
     Indication: PRODUCT USED FOR UNKNOWN INDICATION
  9. MULTI-VITAMINS [Concomitant]
     Indication: PRODUCT USED FOR UNKNOWN INDICATION
  10. PROTONIX [Concomitant]
  11. LASIX [Concomitant]
     Indication: PRODUCT USED FOR UNKNOWN INDICATION
  12. LEUPROLIDE ACETATE [Suspect]
     Indication: PROSTATE CANCER
     Route: 030
     Dates: start: 20090720, end: 20090720
  13. LEUPROLIDE ACETATE [Suspect]
     Dosage: TOTAL DOSE ADMINISTERED:75 MG
     Route: 030
     Dates: start: 20090817, end: 20100201
  14. LASIX [Concomitant]
  15. LUMIGAN [Concomitant]
     Indication: PRODUCT USED FOR UNKNOWN INDICATION

REACTIONS (6)
  - PEPTIC ULCER HAEMORRHAGE [None]
  - CARDIAC FAILURE CONGESTIVE [None]
  - PERIPHERAL ISCHAEMIA [None]
  - ACUTE MYOCARDIAL INFARCTION [None]
  - ENDOCARDITIS [None]
  - SEPSIS [None]
